FAERS Safety Report 8151385-4 (Version None)
Quarter: 2012Q1

REPORT INFORMATION
  Report Type: 
  Country: None (occurrence: None)
  Receive Date: 20120220
  Receipt Date: 20120210
  Transmission Date: 20120608
  Serious: Yes (Death, Disabling)
  Sender: FDA-Public Use
  Company Number: US-ROCHE-1036182

PATIENT
  Sex: Male
  Weight: 59.656 kg

DRUGS (12)
  1. AVASTIN [Suspect]
     Indication: NON-SMALL CELL LUNG CANCER
     Route: 042
     Dates: start: 20070221, end: 20070606
  2. AVASTIN [Suspect]
     Route: 042
     Dates: start: 20070713, end: 20070927
  3. TAXOTERE [Suspect]
     Indication: NON-SMALL CELL LUNG CANCER
     Route: 042
     Dates: start: 20070207, end: 20070823
  4. DURAGESIC-100 [Concomitant]
     Dates: start: 20071011, end: 20071012
  5. DURAGESIC-100 [Concomitant]
     Dates: start: 20071012, end: 20071014
  6. MORPHINE SULFATE [Concomitant]
     Indication: PAIN
     Route: 048
     Dates: start: 20070713, end: 20071012
  7. DURAGESIC-100 [Concomitant]
     Dates: start: 20070907, end: 20071003
  8. GEMZAR [Suspect]
     Indication: NON-SMALL CELL LUNG CANCER
     Route: 042
     Dates: start: 20070927, end: 20070927
  9. MORPHINE SULFATE [Concomitant]
     Route: 048
     Dates: start: 20071012, end: 20071014
  10. PARAPLATIN [Suspect]
     Indication: NON-SMALL CELL LUNG CANCER
     Route: 042
     Dates: start: 20070207, end: 20070823
  11. DURAGESIC-100 [Concomitant]
     Dates: start: 20071003, end: 20071011
  12. ATIVAN [Concomitant]
     Dosage: 0.5 MG- 1.0 MG
     Route: 048
     Dates: start: 20071011, end: 20071014

REACTIONS (1)
  - DISEASE PROGRESSION [None]
